FAERS Safety Report 5659053-5 (Version None)
Quarter: 2008Q1

REPORT INFORMATION
  Report Type: 
  Country: None (occurrence: None)
  Receive Date: 20080310
  Receipt Date: 20071221
  Transmission Date: 20080703
  Serious: No
  Sender: FDA-Public Use
  Company Number: US-BAYER-200713312BCC

PATIENT
  Sex: Male
  Weight: 86 kg

DRUGS (2)
  1. ALEVE [Suspect]
     Indication: PAIN
     Dosage: AS USED: 440 MG  UNIT DOSE: 220 MG
     Route: 048
  2. ALEVE [Suspect]
     Dosage: UNIT DOSE: 220 MG
     Route: 048

REACTIONS (2)
  - OCULAR HYPERAEMIA [None]
  - PAIN [None]
